FAERS Safety Report 4643171-4 (Version None)
Quarter: 2005Q2

REPORT INFORMATION
  Report Type: 
  Country: None (occurrence: None)
  Receive Date: 20050421
  Receipt Date: 20050408
  Transmission Date: 20051028
  Serious: Yes (Death, Life-Threatening, Hospitalization, Other)
  Sender: FDA-Public Use
  Company Number: 2005023919

PATIENT
  Age: 64 Year
  Sex: Female
  Weight: 65 kg

DRUGS (20)
  1. CYCLOKAPRON (IV) (TRANEXAMIC ACID) [Suspect]
     Indication: SUBARACHNOID HAEMORRHAGE
     Dates: start: 20050112
  2. CEFUROXIME [Concomitant]
  3. FUROSEMIDE [Concomitant]
  4. WARFARIN SODIUM [Concomitant]
  5. CARBAMAZEPINE [Concomitant]
  6. PROPOFOL [Concomitant]
  7. SUFENTANIL CITRATE [Concomitant]
  8. METOCLOPRAMIDE [Concomitant]
  9. LACTULOSE [Concomitant]
  10. INSULIN [Concomitant]
  11. HEPARIN-FRACTION, SODIUM SALT (HEPARIN-FRACTION, SODIUM SALT) [Concomitant]
  12. LABETALOL HYDROCHLORIDE [Concomitant]
  13. MOXONIDINE (MOXONIDINE) [Concomitant]
  14. EPHEDRINE HYDROCHORIDE (EPHEDRINE HYDROCHLORIDE) [Concomitant]
  15. CODEINE PHOSPHATE AND ACETAMINOPHEN [Concomitant]
  16. ACETAMINOPHEN [Concomitant]
  17. METRONIDAZOLE [Concomitant]
  18. CIPROFLOXACIN [Concomitant]
  19. NIMODIPINE (NIMODIPINE) [Concomitant]
  20. AMLODIPINE [Concomitant]

REACTIONS (6)
  - ARTERIAL THROMBOSIS LIMB [None]
  - CARDIAC ARREST [None]
  - GANGRENE [None]
  - HYDROCEPHALUS [None]
  - OXYGEN CONSUMPTION INCREASED [None]
  - PYREXIA [None]
